FAERS Safety Report 8113757-3 (Version None)
Quarter: 2012Q1

REPORT INFORMATION
  Report Type: 
  Country: None (occurrence: None)
  Receive Date: 20120203
  Receipt Date: 20120127
  Transmission Date: 20120608
  Serious: Yes (Hospitalization, Other)
  Sender: FDA-Public Use
  Company Number: US-ABBOTT-12P-163-0891942-00

PATIENT
  Age: 76 Year
  Sex: Female

DRUGS (6)
  1. PIROXICAM POTASSIUM [Concomitant]
     Indication: MINERAL SUPPLEMENTATION
  2. HUMIRA [Suspect]
     Indication: RHEUMATOID ARTHRITIS
     Route: 058
     Dates: start: 20030101, end: 20050101
  3. MAGNESIUM [Concomitant]
     Indication: MINERAL SUPPLEMENTATION
  4. SYNTHROID [Concomitant]
     Indication: HYPOTHYROIDISM
  5. HUMIRA [Suspect]
     Indication: CROHN'S DISEASE
     Dates: start: 20120125
  6. IRON [Concomitant]
     Indication: MINERAL SUPPLEMENTATION

REACTIONS (2)
  - COLON CANCER [None]
  - CROHN'S DISEASE [None]
